FAERS Safety Report 17020522 (Version 1)
Quarter: 2019Q4

REPORT INFORMATION
  Report Type: Report from Study
  Country: JP (occurrence: JP)
  Receive Date: 20191112
  Receipt Date: 20191112
  Transmission Date: 20200122
  Serious: Yes (Other)
  Sender: FDA-Public Use
  Company Number: JP-GLAXOSMITHKLINE-JP2019JPN204065

PATIENT
  Age: 37 Year
  Sex: Female

DRUGS (1)
  1. BELIMUMAB SUBCUTANEOUS [Suspect]
     Active Substance: BELIMUMAB
     Dosage: UNK
     Route: 058
     Dates: start: 201902

REACTIONS (1)
  - Internal haemorrhage [Recovered/Resolved]

NARRATIVE: CASE EVENT DATE: 2019
